FAERS Safety Report 21136731 (Version 1)
Quarter: 2022Q3

REPORT INFORMATION
  Report Type: Spontaneous
  Country: US (occurrence: US)
  Receive Date: 20220727
  Receipt Date: 20220727
  Transmission Date: 20221026
  Serious: No
  Sender: FDA-Public Use
  Company Number: US-BRISTOL-MYERS SQUIBB COMPANY-2022-080644

PATIENT
  Age: 70 Year
  Sex: Female

DRUGS (1)
  1. ONUREG [Suspect]
     Active Substance: AZACITIDINE
     Indication: Product used for unknown indication
     Dosage: ONE TABLET BY MOUTH DAILY ON DAYS 1-14 OF EACH 28 DAY CHEMO CYCLE
     Route: 048

REACTIONS (1)
  - Back pain [Unknown]
